FAERS Safety Report 21706203 (Version 1)
Quarter: 2022Q4

REPORT INFORMATION
  Report Type: Spontaneous
  Country: US (occurrence: None)
  Receive Date: 20221208
  Receipt Date: 20221208
  Transmission Date: 20230113
  Serious: Yes (Hospitalization)
  Sender: FDA-Public Use
  Company Number: None

PATIENT
  Age: 79 Year
  Sex: Female
  Weight: 114.88 kg

DRUGS (9)
  1. ERTAPENEM SODIUM [Suspect]
     Active Substance: ERTAPENEM SODIUM
     Indication: Urinary tract infection
     Dosage: FREQUENCY : DAILY;?
     Route: 041
     Dates: start: 20221125, end: 20221125
  2. AMLODIPINE BESYLATE [Concomitant]
  3. aspirin [Concomitant]
  4. BUMEX [Concomitant]
  5. COREG [Concomitant]
  6. LEVEMIR [Concomitant]
     Active Substance: INSULIN DETEMIR
  7. LIPITOR [Concomitant]
  8. LOSARTAN POTASSIUM [Concomitant]
  9. quetiapine fumerate [Concomitant]

REACTIONS (1)
  - Seizure [None]

NARRATIVE: CASE EVENT DATE: 20221125
